FAERS Safety Report 5024475-2 (Version None)
Quarter: 2006Q2

REPORT INFORMATION
  Report Type: 
  Country: None (occurrence: None)
  Receive Date: 20060613
  Receipt Date: 20060228
  Transmission Date: 20061013
  Serious: Yes (Hospitalization)
  Sender: FDA-Public Use
  Company Number: PHFR2006GB01003

PATIENT
  Sex: Male

DRUGS (1)
  1. ELIDEL [Suspect]
     Indication: VASCULITIC RASH
     Dosage: UNK, UNK
     Route: 065
     Dates: start: 20051201

REACTIONS (3)
  - BIOPSY KIDNEY ABNORMAL [None]
  - RENAL FAILURE [None]
  - RENAL TUBULAR DISORDER [None]
